FAERS Safety Report 7083427-1 (Version None)
Quarter: 2010Q4

REPORT INFORMATION
  Report Type: 
  Country: None (occurrence: None)
  Receive Date: 20101104
  Receipt Date: 20101027
  Transmission Date: 20110411
  Serious: Yes (Other)
  Sender: FDA-Public Use
  Company Number: A0890392A

PATIENT
  Age: 43 Year
  Sex: Female
  Weight: 79.5 kg

DRUGS (4)
  1. PAXIL [Suspect]
     Route: 065
  2. LYRICA [Suspect]
     Indication: FIBROMYALGIA
     Dosage: 75MG PER DAY
     Route: 048
     Dates: start: 20090101, end: 20090101
  3. XANAX [Concomitant]
  4. LEVOTHYROXINE [Concomitant]

REACTIONS (6)
  - ABNORMAL BEHAVIOUR [None]
  - DEMENTIA [None]
  - DRUG INEFFECTIVE [None]
  - DRUG INTERACTION [None]
  - OBSESSIVE-COMPULSIVE DISORDER [None]
  - SUICIDAL IDEATION [None]
